FAERS Safety Report 6563054-2 (Version None)
Quarter: 2010Q1

REPORT INFORMATION
  Report Type: 
  Country: None (occurrence: None)
  Receive Date: 20100130
  Receipt Date: 20091207
  Transmission Date: 20100710
  Serious: No
  Sender: FDA-Public Use
  Company Number: US-ABBOTT-09P-163-0612927-00

PATIENT
  Sex: Female
  Weight: 117.13 kg

DRUGS (7)
  1. HUMIRA [Suspect]
     Indication: RHEUMATOID ARTHRITIS
     Dates: start: 20091026
  2. METHOTREXATE [Concomitant]
     Indication: DRUG USE FOR UNKNOWN INDICATION
  3. FOLIC ACID [Concomitant]
     Indication: DRUG USE FOR UNKNOWN INDICATION
  4. CARDURA [Concomitant]
     Indication: DRUG USE FOR UNKNOWN INDICATION
  5. ALPRAZOLAM [Concomitant]
     Indication: DRUG USE FOR UNKNOWN INDICATION
  6. OMEPRAZOLE [Concomitant]
     Indication: DRUG USE FOR UNKNOWN INDICATION
  7. EYE DROPS [Concomitant]
     Indication: DRY EYE

REACTIONS (4)
  - HICCUPS [None]
  - NASOPHARYNGITIS [None]
  - RHINORRHOEA [None]
  - SNEEZING [None]
